FAERS Safety Report 25675195 (Version 5)
Quarter: 2025Q4

REPORT INFORMATION
  Report Type: Spontaneous
  Country: CH (occurrence: CH)
  Receive Date: 20250813
  Receipt Date: 20251105
  Transmission Date: 20260118
  Serious: Yes (Other)
  Sender: NOVARTIS
  Company Number: CH-002147023-NVSC2025CH124550

PATIENT
  Sex: Female

DRUGS (5)
  1. SCEMBLIX [Suspect]
     Active Substance: ASCIMINIB HYDROCHLORIDE
     Indication: Chronic myeloid leukaemia
     Dosage: 40 MG X2
     Route: 048
     Dates: start: 20220309, end: 20220824
  2. SCEMBLIX [Suspect]
     Active Substance: ASCIMINIB HYDROCHLORIDE
     Dosage: 40 MG X1/2D
     Route: 048
     Dates: start: 20220907, end: 20221020
  3. SCEMBLIX [Suspect]
     Active Substance: ASCIMINIB HYDROCHLORIDE
     Dosage: 40 MG X1/3D
     Route: 048
     Dates: start: 20221110
  4. SCEMBLIX [Suspect]
     Active Substance: ASCIMINIB HYDROCHLORIDE
     Dosage: 40 MG, QD
     Route: 048
     Dates: start: 20231023
  5. SCEMBLIX [Suspect]
     Active Substance: ASCIMINIB HYDROCHLORIDE
     Dosage: 40 MG, BID
     Route: 048
     Dates: start: 20231030, end: 20240112

REACTIONS (3)
  - Thrombocytopenia [Recovered/Resolved]
  - Philadelphia chromosome positive [Recovering/Resolving]
  - Loss of therapeutic response [Recovering/Resolving]

NARRATIVE: CASE EVENT DATE: 20230417
